FAERS Safety Report 20607058 (Version 1)
Quarter: 2022Q1

REPORT INFORMATION
  Report Type: Spontaneous
  Country: IE (occurrence: None)
  Receive Date: 20220317
  Receipt Date: 20220317
  Transmission Date: 20220423
  Serious: Yes (Life-Threatening, Hospitalization, Other)
  Sender: FDA-Public Use
  Company Number: None

PATIENT
  Age: 30 Year
  Sex: Female

DRUGS (2)
  1. ACETAMINOPHEN [Suspect]
     Active Substance: ACETAMINOPHEN
     Indication: Product used for unknown indication
     Dosage: 3 X 1 GRAM IV DOSES
     Route: 042
  2. IBUPROFEN/CODEINE PHOSPHATE HEMIHYDRATE [Concomitant]
     Indication: Product used for unknown indication
     Dosage: NUROFEN PLUS IBUPROFEN/CODEINE PHOSP HEM

REACTIONS (4)
  - Toxicity to various agents [Unknown]
  - Acute kidney injury [Unknown]
  - Encephalopathy [Unknown]
  - Acute hepatic failure [Recovered/Resolved]

NARRATIVE: CASE EVENT DATE: 20190107
